FAERS Safety Report 7002141-1 (Version None)
Quarter: 2010Q3

REPORT INFORMATION
  Report Type: 
  Country: None (occurrence: None)
  Receive Date: 20100920
  Receipt Date: 20090817
  Transmission Date: 20110219
  Serious: Yes (Hospitalization)
  Sender: FDA-Public Use
  Company Number: US-ASTRAZENECA-2009SE08661

PATIENT
  Age: 47 Year
  Sex: Male

DRUGS (15)
  1. SEROQUEL [Suspect]
     Route: 048
     Dates: end: 20090802
  2. SEROQUEL [Suspect]
     Route: 048
     Dates: start: 20090802, end: 20090803
  3. SEROQUEL [Suspect]
     Route: 048
     Dates: start: 20090803, end: 20090804
  4. HALDOL [Suspect]
  5. THORIZINE [Suspect]
  6. RISPERDAL [Suspect]
     Dates: end: 20090731
  7. ATIVAN [Concomitant]
  8. CLONAPINE [Concomitant]
  9. TENORMIN [Concomitant]
  10. BENADRYL [Concomitant]
  11. TERBUTALINE SULFATE [Concomitant]
  12. PEPCID [Concomitant]
  13. SINGULAIR [Concomitant]
  14. ATROVENT [Concomitant]
  15. DEPAKOTE [Concomitant]

REACTIONS (1)
  - PRIAPISM [None]
